FAERS Safety Report 4413922-2 (Version None)
Quarter: 2004Q3

REPORT INFORMATION
  Report Type: 
  Country: None (occurrence: None)
  Receive Date: 20040802
  Receipt Date: 20040721
  Transmission Date: 20050211
  Serious: Yes (Hospitalization)
  Sender: FDA-Public Use
  Company Number: 2004UW14257

PATIENT
  Age: 77 Year
  Sex: Male

DRUGS (4)
  1. CRESTOR [Suspect]
     Dosage: 10 MG PO
     Route: 048
     Dates: start: 20040524, end: 20040626
  2. TOPROL-XL [Concomitant]
  3. ZYLOPRIM [Concomitant]
  4. PREVACID [Concomitant]

REACTIONS (2)
  - MUSCULAR WEAKNESS [None]
  - RENAL FAILURE ACUTE [None]
